FAERS Safety Report 6121471-9 (Version None)
Quarter: 2009Q1

REPORT INFORMATION
  Report Type: 
  Country: None (occurrence: None)
  Receive Date: 20090313
  Receipt Date: 20090226
  Transmission Date: 20090719
  Serious: Yes (Death)
  Sender: FDA-Public Use
  Company Number: 2009US000597

PATIENT

DRUGS (1)
  1. PROGRAF [Suspect]
     Indication: DRUG EXPOSURE DURING PREGNANCY

REACTIONS (2)
  - MATERNAL DRUGS AFFECTING FOETUS [None]
  - STILLBIRTH [None]
